FAERS Safety Report 9970036 (Version 1)
Quarter: 2014Q1

REPORT INFORMATION
  Report Type: Spontaneous
  Country: US (occurrence: None)
  Receive Date: 20140304
  Receipt Date: 20140304
  Transmission Date: 20141002
  Serious: Yes (Hospitalization)
  Sender: FDA-Public Use
  Company Number: DSM-2014-00183

PATIENT
  Age: 77 Year
  Sex: Female

DRUGS (7)
  1. OLPREZIDE (HYDROCHLOROTHIAZIDE, OLMESARTAN MEDOXOMIL) (TABLET) (HYDROCHLOROTHIAZIDE, OLMESARTAN MEDOXOMIL) [Suspect]
     Indication: HYPERTENSION
     Route: 048
     Dates: end: 20140110
  2. NEXIUM (ESOMEPRAZOLE MAGNESIUM) (20 MILLIGRAM) (ESOMEPRAZOLE MAGNESIUM) [Concomitant]
  3. FERRO-GRAD (FERROUS SULFATE) (105 MILLIGRAM) (FERROUS SULFATE) [Concomitant]
  4. FOLINA (FOLIC ACID) (5 MILLIGRAM) (FOLIC ACID) [Concomitant]
  5. TAVOR (LORAZEPAM) (2.5 MILLIGRAM) (LORAZEPAM) [Concomitant]
  6. ASCRIPTIN (ACETYLSALICYLIC ACID, MAGNESIUM HYDROXIDE, ALUMINIUM HYDROXIDE) (ACETYLSALICYLIC ACID, MAGNESIUM HYDROXIDE, ALUMINIUM HYDROXIDE) [Concomitant]
  7. ZOLOFT (SERTRALINE HYDROCHLORIDE) (50 MILLIGRAM) (SERTRALINE HYDROCHLORIDE) [Concomitant]

REACTIONS (4)
  - Ankle fracture [None]
  - Drop attacks [None]
  - Hyponatraemia [None]
  - Hypotension [None]
